FAERS Safety Report 7650399-8 (Version None)
Quarter: 2011Q3

REPORT INFORMATION
  Report Type: 
  Country: None (occurrence: None)
  Receive Date: 20110802
  Receipt Date: 20110722
  Transmission Date: 20111222
  Serious: Yes (Death, Hospitalization)
  Sender: FDA-Public Use
  Company Number: US-BAXTER-2011BH021080

PATIENT
  Sex: Female

DRUGS (1)
  1. DIANEAL [Suspect]
     Indication: PERITONEAL DIALYSIS
     Route: 033
     Dates: start: 20080101, end: 20110701

REACTIONS (6)
  - DEATH [None]
  - CYST [None]
  - INFECTIOUS PERITONITIS [None]
  - MYOCARDIAL INFARCTION [None]
  - ASTHENIA [None]
  - INTESTINAL PERFORATION [None]
